FAERS Safety Report 4504792-2 (Version None)
Quarter: 2004Q4

REPORT INFORMATION
  Report Type: 
  Country: None (occurrence: None)
  Receive Date: 20040927
  Receipt Date: 20040810
  Transmission Date: 20050328
  Serious: No
  Sender: FDA-Public Use
  Company Number: USA040875164

PATIENT
  Sex: Female
  Weight: 34 kg

DRUGS (1)
  1. STRATTERA [Suspect]
     Indication: ATTENTION DEFICIT/HYPERACTIVITY DISORDER
     Dosage: 50 MG DAY
     Dates: start: 20040201

REACTIONS (6)
  - CHEST PAIN [None]
  - DYSPNOEA [None]
  - IRRITABILITY [None]
  - MALAISE [None]
  - PRESCRIBED OVERDOSE [None]
  - SOMNOLENCE [None]
